FAERS Safety Report 14700249 (Version 1)
Quarter: 2018Q1

REPORT INFORMATION
  Report Type: Other
  Country: IN (occurrence: IN)
  Receive Date: 20180330
  Receipt Date: 20180330
  Transmission Date: 20180509
  Serious: Yes (Death, Life-Threatening, Hospitalization, Other)
  Sender: FDA-Public Use
  Company Number: IN-NOSTRUM LABORATORIES, INC.-2044812

PATIENT
  Age: 45 Year
  Sex: Female

DRUGS (1)
  1. DAPSONE. [Suspect]
     Active Substance: DAPSONE
     Indication: LEPROSY
     Route: 048

REACTIONS (7)
  - Drug reaction with eosinophilia and systemic symptoms [Fatal]
  - Klebsiella sepsis [None]
  - Sepsis [Fatal]
  - Hypothyroidism [Fatal]
  - Acute kidney injury [None]
  - Pneumonia [Fatal]
  - Diabetes mellitus [Fatal]
